FAERS Safety Report 16667886 (Version 1)
Quarter: 2019Q3

REPORT INFORMATION
  Report Type: Spontaneous
  Country: CH (occurrence: CH)
  Receive Date: 20190805
  Receipt Date: 20190805
  Transmission Date: 20191004
  Serious: Yes (Other)
  Sender: FDA-Public Use
  Company Number: CH-JNJFOC-20190743390

PATIENT
  Age: 42 Year
  Sex: Female

DRUGS (13)
  1. CANNABIDIOL [Interacting]
     Active Substance: CANNABIDIOL
     Indication: PRODUCT USED FOR UNKNOWN INDICATION
     Route: 048
  2. IBUPROFEN. [Concomitant]
     Active Substance: IBUPROFEN
     Indication: PRODUCT USED FOR UNKNOWN INDICATION
     Dosage: UNK
     Route: 048
  3. ESCITALOPRAM [Interacting]
     Active Substance: ESCITALOPRAM OXALATE
     Indication: PRODUCT USED FOR UNKNOWN INDICATION
     Route: 048
     Dates: start: 201707, end: 201809
  4. OLANZAPINE. [Suspect]
     Active Substance: OLANZAPINE
     Indication: ANXIETY
     Route: 065
     Dates: start: 2017
  5. ESCITALOPRAM [Interacting]
     Active Substance: ESCITALOPRAM OXALATE
     Route: 048
     Dates: start: 201809
  6. TOPIRAMATE. [Suspect]
     Active Substance: TOPIRAMATE
     Indication: PRODUCT USED FOR UNKNOWN INDICATION
     Route: 048
     Dates: start: 201707
  7. CALCITRIOL. [Concomitant]
     Active Substance: CALCITRIOL
     Indication: PRODUCT USED FOR UNKNOWN INDICATION
     Dosage: UNK
     Route: 048
  8. DIENOGEST [Concomitant]
     Active Substance: DIENOGEST
     Indication: PRODUCT USED FOR UNKNOWN INDICATION
     Dosage: 2 MG, 1/DAY
     Route: 048
  9. TRAMADOL/APAP [Suspect]
     Active Substance: ACETAMINOPHEN\TRAMADOL
     Indication: PRODUCT USED FOR UNKNOWN INDICATION
     Route: 065
  10. TRAZODONE [Interacting]
     Active Substance: TRAZODONE HYDROCHLORIDE
     Indication: PRODUCT USED FOR UNKNOWN INDICATION
     Route: 048
  11. TIZANIDINE. [Concomitant]
     Active Substance: TIZANIDINE
     Indication: PRODUCT USED FOR UNKNOWN INDICATION
     Dosage: 4 MG, 1/DAY
     Route: 048
  12. DESLORATADINE. [Concomitant]
     Active Substance: DESLORATADINE
     Indication: PRODUCT USED FOR UNKNOWN INDICATION
     Dosage: 5 MG, UNK
     Route: 048
  13. EUTHYROX [Concomitant]
     Active Substance: LEVOTHYROXINE SODIUM
     Indication: PRODUCT USED FOR UNKNOWN INDICATION
     Dosage: 175 MCG, 1/DAY
     Route: 065

REACTIONS (4)
  - Cognitive disorder [Not Recovered/Not Resolved]
  - Drug interaction [Not Recovered/Not Resolved]
  - Aphasia [Not Recovered/Not Resolved]
  - Confusional state [Not Recovered/Not Resolved]

NARRATIVE: CASE EVENT DATE: 201812
